FAERS Safety Report 24142995 (Version 2)
Quarter: 2024Q3

REPORT INFORMATION
  Report Type: Spontaneous
  Country: FR (occurrence: FR)
  Receive Date: 20240726
  Receipt Date: 20240819
  Transmission Date: 20241017
  Serious: Yes (Hospitalization)
  Sender: NOVARTIS
  Company Number: None

PATIENT
  Age: 80 Year
  Sex: Female
  Weight: 47 kg

DRUGS (1)
  1. LUTATHERA [Suspect]
     Active Substance: LUTETIUM OXODOTREOTIDE LU-177
     Indication: Small intestine neuroendocrine tumour
     Dosage: UNK
     Route: 042
     Dates: start: 20230330, end: 20230928

REACTIONS (1)
  - Thrombotic microangiopathy [Not Recovered/Not Resolved]

NARRATIVE: CASE EVENT DATE: 20240516
